FAERS Safety Report 18440114 (Version 4)
Quarter: 2021Q3

REPORT INFORMATION
  Report Type: Report from Study
  Country: None (occurrence: CO)
  Receive Date: 20201029
  Receipt Date: 20210924
  Transmission Date: 20211014
  Serious: Yes (Hospitalization, Disabling, Other)
  Sender: FDA-Public Use
  Company Number: CO-ABBVIE-20K-036-3627524-00

PATIENT
  Age: 62 Year
  Sex: Female
  Weight: 65 kg

DRUGS (7)
  1. HUMIRA [Suspect]
     Active Substance: ADALIMUMAB
     Indication: RHEUMATOID ARTHRITIS
     Route: 058
     Dates: start: 2020, end: 20210207
  2. PREDNISOLONE. [Concomitant]
     Active Substance: PREDNISOLONE
     Indication: PRODUCT USED FOR UNKNOWN INDICATION
     Route: 048
  3. ACETAMINOPHEN. [Concomitant]
     Active Substance: ACETAMINOPHEN
     Indication: GENERAL SYMPTOM
  4. OMEPRAZOLE. [Concomitant]
     Active Substance: OMEPRAZOLE
     Indication: GASTRITIS
     Route: 048
  5. LEFLUNOMIDE. [Concomitant]
     Active Substance: LEFLUNOMIDE
     Indication: PRODUCT USED FOR UNKNOWN INDICATION
     Route: 048
  6. ACETAMINOPHEN. [Concomitant]
     Active Substance: ACETAMINOPHEN
     Indication: PRODUCT USED FOR UNKNOWN INDICATION
     Route: 048
  7. HUMIRA [Suspect]
     Active Substance: ADALIMUMAB
     Indication: RHEUMATOID ARTHRITIS
     Route: 058
     Dates: start: 20150805, end: 20200928

REACTIONS (39)
  - Tibia fracture [Recovered/Resolved]
  - Inflammation [Recovering/Resolving]
  - Contusion [Unknown]
  - Blindness [Not Recovered/Not Resolved]
  - Pain [Not Recovered/Not Resolved]
  - Eye disorder [Not Recovered/Not Resolved]
  - Emotional distress [Not Recovered/Not Resolved]
  - Fibula fracture [Recovered/Resolved]
  - Varicose vein [Not Recovered/Not Resolved]
  - Drug ineffective [Recovering/Resolving]
  - Dry eye [Not Recovered/Not Resolved]
  - Tooth loss [Recovering/Resolving]
  - Dizziness [Not Recovered/Not Resolved]
  - Arthralgia [Recovering/Resolving]
  - Feeling hot [Not Recovered/Not Resolved]
  - Eye pain [Not Recovered/Not Resolved]
  - Tinnitus [Recovering/Resolving]
  - Erythema [Recovering/Resolving]
  - Musculoskeletal disorder [Not Recovered/Not Resolved]
  - Limb discomfort [Not Recovered/Not Resolved]
  - Vertigo [Not Recovered/Not Resolved]
  - Thermal burn [Not Recovered/Not Resolved]
  - Musculoskeletal disorder [Recovering/Resolving]
  - Wound [Not Recovered/Not Resolved]
  - Musculoskeletal disorder [Recovering/Resolving]
  - Fear [Recovering/Resolving]
  - Rash [Recovering/Resolving]
  - Medical device site burn [Recovering/Resolving]
  - Tooth disorder [Not Recovered/Not Resolved]
  - Head injury [Recovering/Resolving]
  - Haematoma [Recovered/Resolved]
  - Limb asymmetry [Recovering/Resolving]
  - Ligament sprain [Recovering/Resolving]
  - Neuralgia [Recovering/Resolving]
  - Gait disturbance [Not Recovered/Not Resolved]
  - Drug hypersensitivity [Not Recovered/Not Resolved]
  - Accident [Recovering/Resolving]
  - Joint swelling [Recovering/Resolving]
  - Headache [Recovering/Resolving]

NARRATIVE: CASE EVENT DATE: 20180105
